FAERS Safety Report 6122836-1 (Version None)
Quarter: 2009Q1

REPORT INFORMATION
  Report Type: 
  Country: None (occurrence: None)
  Receive Date: 20090318
  Receipt Date: 20090309
  Transmission Date: 20090719
  Serious: Yes (Hospitalization, Disabling)
  Sender: FDA-Public Use
  Company Number: A0766145A

PATIENT
  Age: 50 Year
  Sex: Male
  Weight: 113.4 kg

DRUGS (3)
  1. REQUIP XL [Suspect]
     Indication: PARKINSON'S DISEASE
     Dosage: 4MG FOUR TIMES PER DAY
     Route: 048
     Dates: start: 20080729, end: 20081225
  2. REQUIP XL [Suspect]
     Dosage: 16MG IN THE MORNING
  3. SINEMET [Concomitant]

REACTIONS (7)
  - COMPULSIVE SHOPPING [None]
  - HALLUCINATION [None]
  - INSOMNIA [None]
  - MANIA [None]
  - OBSESSIVE-COMPULSIVE DISORDER [None]
  - PARKINSONISM [None]
  - PSYCHOTIC DISORDER [None]
